FAERS Safety Report 18257242 (Version 1)
Quarter: 2020Q3

REPORT INFORMATION
  Report Type: Spontaneous
  Country: US (occurrence: US)
  Receive Date: 20200910
  Receipt Date: 20200910
  Transmission Date: 20201103
  Serious: Yes (Hospitalization)
  Sender: FDA-Public Use
  Company Number: None

PATIENT
  Age: 56 Year
  Sex: Female

DRUGS (18)
  1. AZITHROMYCIN ANHYDROUS. [Concomitant]
     Active Substance: AZITHROMYCIN ANHYDROUS
  2. GLIPIZIDE. [Concomitant]
     Active Substance: GLIPIZIDE
  3. PREDNISONE. [Concomitant]
     Active Substance: PREDNISONE
  4. ENVARSUS XR [Suspect]
     Active Substance: TACROLIMUS
     Indication: RENAL TRANSPLANT
     Dosage: ?          OTHER FREQUENCY:QAM;OTHER ROUTE:PO TOTAL DOSE 5MG?
     Dates: start: 20160707
  5. MYCOPHENOLIC [Concomitant]
     Active Substance: MYCOPHENOLIC ACID
  6. ATORVASTATIN [Concomitant]
     Active Substance: ATORVASTATIN
  7. CLARITHROMYC [Concomitant]
  8. CYCLOBENZAPR [Concomitant]
     Active Substance: CYCLOBENZAPRINE
  9. NIFEDIPINE. [Concomitant]
     Active Substance: NIFEDIPINE
  10. RIZATRIPTAN. [Concomitant]
     Active Substance: RIZATRIPTAN
  11. LANTUS SOLOS [Concomitant]
  12. HYDROCO/APAP [Concomitant]
     Active Substance: ACETAMINOPHEN\HYDROCODONE
  13. VICTOZA [Concomitant]
     Active Substance: LIRAGLUTIDE
  14. ENVARSUS XR [Suspect]
     Active Substance: TACROLIMUS
     Indication: RENAL TRANSPLANT
     Dosage: ?          OTHER FREQUENCY:QAM;OTHER ROUTE:PO TOTAL DOSE 5MG?
     Dates: start: 20160707
  15. AZELASTINE. [Concomitant]
     Active Substance: AZELASTINE HYDROCHLORIDE
  16. BENZONATATE. [Concomitant]
     Active Substance: BENZONATATE
  17. AMOX/K CLAV [Concomitant]
     Active Substance: AMOXICILLIN\CLAVULANATE POTASSIUM
  18. FLUTICASONE. [Concomitant]
     Active Substance: FLUTICASONE

REACTIONS (1)
  - Muscle spasms [None]

NARRATIVE: CASE EVENT DATE: 20200909
